FAERS Safety Report 16372740 (Version 2)
Quarter: 2019Q2

REPORT INFORMATION
  Report Type: Spontaneous
  Country: JP (occurrence: JP)
  Receive Date: 20190530
  Receipt Date: 20190626
  Transmission Date: 20190711
  Serious: Yes (Hospitalization, Other)
  Sender: FDA-Public Use
  Company Number: JP-BRISTOL-MYERS SQUIBB COMPANY-BMS-2019-026950

PATIENT
  Age: 73 Year
  Sex: Male
  Weight: 47.6 kg

DRUGS (7)
  1. TEPRENONE [Concomitant]
     Active Substance: TEPRENONE
     Indication: GASTRITIS
     Dosage: 150 MILLIGRAM
     Route: 048
  2. OPDIVO [Suspect]
     Active Substance: NIVOLUMAB
     Indication: LARYNGEAL CANCER
     Dosage: 240 MG, TWICE A MONTH
     Route: 041
     Dates: start: 20180312, end: 20190212
  3. FEBURIC [Concomitant]
     Active Substance: FEBUXOSTAT
     Indication: HYPERURICAEMIA
     Dosage: 2 DOSAGE FORM
     Route: 048
  4. SODIUM CHLORIDE. [Concomitant]
     Active Substance: SODIUM CHLORIDE
     Indication: HYPONATRAEMIA
     Dosage: 9 GRAM
     Route: 048
     Dates: start: 20180911
  5. S-1TAIHO OD [Suspect]
     Active Substance: GIMERACIL\OTERACIL\TEGAFUR
     Indication: HEAD AND NECK CANCER
     Dosage: 6 TAB, QD
     Route: 048
     Dates: start: 20190226, end: 20190306
  6. S-1TAIHO OD [Suspect]
     Active Substance: GIMERACIL\OTERACIL\TEGAFUR
     Indication: PRODUCT USED FOR UNKNOWN INDICATION
     Dosage: UNK DOSAGE FORM
     Route: 048
     Dates: start: 20190307, end: 20190310
  7. LOXOPROFEN [Concomitant]
     Active Substance: LOXOPROFEN
     Indication: NECK PAIN
     Dosage: 3 DOSAGE FORM
     Route: 048

REACTIONS (2)
  - Malignant neoplasm progression [Unknown]
  - Enterocolitis [Recovered/Resolved]

NARRATIVE: CASE EVENT DATE: 201902
